FAERS Safety Report 19804313 (Version 3)
Quarter: 2023Q4

REPORT INFORMATION
  Report Type: Spontaneous
  Country: US (occurrence: None)
  Receive Date: 20210908
  Receipt Date: 20231205
  Transmission Date: 20240110
  Serious: Yes (Hospitalization)
  Sender: FDA-Public Use
  Company Number: US-FARMAPROD-202105-0700

PATIENT
  Age: 79 Year
  Sex: Female

DRUGS (8)
  1. OXERVATE [Suspect]
     Active Substance: CENEGERMIN-BKBJ
     Indication: Neurotrophic keratopathy
     Route: 047
     Dates: start: 20210422, end: 20210617
  2. OXERVATE [Suspect]
     Active Substance: CENEGERMIN-BKBJ
     Route: 047
     Dates: start: 20220316, end: 20220609
  3. OXERVATE [Suspect]
     Active Substance: CENEGERMIN-BKBJ
     Route: 047
     Dates: start: 20231016
  4. ESTRADIOL [Concomitant]
     Active Substance: ESTRADIOL
  5. ADVANCED RELIEF [Concomitant]
     Active Substance: DEXTRAN 70\POLYETHYLENE GLYCOL 400\POVIDONE\TETRAHYDROZOLINE HYDROCHLORIDE
     Route: 047
  6. CALCIUM\VITAMIN D [Concomitant]
     Active Substance: CALCIUM\VITAMIN D
     Dosage: 500 MG-1000 UI
  7. LORATADINE-D [Concomitant]
     Dosage: 10 MG-240 MG, FOR 24 HOURS
  8. ESTRADIOL/TESTOSTERONE/PROGESTERONE [Concomitant]

REACTIONS (9)
  - Hospitalisation [Unknown]
  - Periorbital pain [Unknown]
  - Eye pain [Not Recovered/Not Resolved]
  - Product dose omission issue [Not Recovered/Not Resolved]
  - Product storage error [Unknown]
  - Wrong technique in product usage process [Unknown]
  - Photopsia [Recovered/Resolved]
  - Weight decreased [Unknown]
  - Photophobia [Unknown]

NARRATIVE: CASE EVENT DATE: 20210509
